FAERS Safety Report 6073067-5 (Version None)
Quarter: 2009Q1

REPORT INFORMATION
  Report Type: 
  Country: None (occurrence: None)
  Receive Date: 20090211
  Receipt Date: 20090206
  Transmission Date: 20090719
  Serious: Yes (Other)
  Sender: FDA-Public Use
  Company Number: GB-BRISTOL-MYERS SQUIBB COMPANY-14479901

PATIENT
  Age: 70 Year
  Sex: Male
  Weight: 78 kg

DRUGS (2)
  1. SPRYCEL [Suspect]
     Indication: CHRONIC MYELOID LEUKAEMIA
     Dosage: DRUG INTERRUPTED ON 13JAN09 AND RESTARTED AT 50MG ON 22JAN09
     Route: 048
     Dates: start: 20081230
  2. ALLOPURINOL [Concomitant]
     Indication: GOUT
     Route: 048

REACTIONS (5)
  - DIARRHOEA [None]
  - DYSPNOEA [None]
  - EXERCISE TOLERANCE DECREASED [None]
  - PLEURAL EFFUSION [None]
  - WEIGHT INCREASED [None]
